FAERS Safety Report 8348811 (Version 3)
Quarter: 2012Q4

REPORT INFORMATION
  Report Type: 
  Country: CN (occurrence: CN)
  Receive Date: 20120123
  Receipt Date: 20121127
  Transmission Date: 20130627
  Serious: Yes (Hospitalization)
  Sender: FDA-Public Use
  Company Number: PHHO2012CN000817

PATIENT
  Age: 48 Year
  Sex: Male
  Weight: 84 kg

DRUGS (4)
  1. AFINITOR [Suspect]
     Indication: METASTATIC RENAL CELL CARCINOMA
     Dosage: 10 mg, QD
     Route: 048
     Dates: start: 20111209, end: 20120103
  2. AFINITOR [Suspect]
     Dosage: 10 mg, QD
     Route: 048
     Dates: start: 20120129
  3. AZITHROMYCIN [Concomitant]
     Indication: ANTIINFLAMMATORY THERAPY
     Dosage: 500 mg, QD
     Dates: start: 20120105, end: 20120107
  4. INDOMETHACIN [Concomitant]
     Dosage: 50 mg, UNK
     Route: 042
     Dates: start: 20120105, end: 20120105

REACTIONS (2)
  - Appendicitis [Recovered/Resolved]
  - Anal abscess [Recovered/Resolved]
